APPROVED DRUG PRODUCT: IVABRADINE HYDROCHLORIDE
Active Ingredient: IVABRADINE HYDROCHLORIDE
Strength: EQ 5MG BASE
Dosage Form/Route: TABLET;ORAL
Application: A215238 | Product #001 | TE Code: AB
Applicant: ALEMBIC PHARMACEUTICALS LTD
Approved: Nov 8, 2024 | RLD: No | RS: No | Type: RX